FAERS Safety Report 7904659-3 (Version None)
Quarter: 2011Q4

REPORT INFORMATION
  Report Type: 
  Country: None (occurrence: None)
  Receive Date: 20111109
  Receipt Date: 20111101
  Transmission Date: 20120403
  Serious: Yes (Other)
  Sender: FDA-Public Use
  Company Number: CA-GLAXOSMITHKLINE-A0951444A

PATIENT
  Sex: Female
  Weight: 90.9 kg

DRUGS (3)
  1. ADVAIR DISKUS 100/50 [Suspect]
     Indication: CHRONIC OBSTRUCTIVE PULMONARY DISEASE
     Dosage: 2PUFF TWICE PER DAY
     Route: 055
     Dates: start: 20050101
  2. WATER PILL [Concomitant]
     Dosage: 2TAB TWICE PER DAY
     Route: 065
  3. METOPROLOL SUCCINATE [Concomitant]
     Dosage: 2TAB TWICE PER DAY

REACTIONS (3)
  - ASTHENIA [None]
  - ATRIAL FIBRILLATION [None]
  - APHASIA [None]
